FAERS Safety Report 8575514-3 (Version None)
Quarter: 2012Q3

REPORT INFORMATION
  Report Type: 
  Country: None (occurrence: None)
  Receive Date: 20120807
  Receipt Date: 20120801
  Transmission Date: 20120928
  Serious: Yes (Hospitalization, Other)
  Sender: FDA-Public Use
  Company Number: PHHY2012BR057541

PATIENT
  Age: 82 Year
  Sex: Male

DRUGS (10)
  1. PREDNISOLONE [Concomitant]
     Dosage: 1 DF, DAILY
  2. EXELON [Suspect]
     Indication: DEMENTIA ALZHEIMER'S TYPE
     Dosage: 13.3 MG,/24 HOURS
     Route: 062
  3. FINASTERIDE [Concomitant]
     Dosage: 1 DF, DAILY
  4. OMEPRAZOLE [Concomitant]
     Dosage: 2 DF, DAILY
     Route: 048
  5. BUSCOPAN COMPOSITUM                     /GFR/ [Concomitant]
     Indication: ABDOMINAL PAIN
     Dosage: 2 DF, DAILY
     Route: 048
  6. LOSARTAN POTASSIUM [Concomitant]
     Dosage: 0.5 DF, DAILY
  7. LEVOTHYROXINE SODIUM [Concomitant]
     Dosage: 1 DF, DAILY
  8. TAMSULOSIN HYDROCHLORIDE [Concomitant]
     Dosage: 1 DF, DAILY
  9. PROPRANOLOL [Concomitant]
     Dosage: 1 DF, DAILY
     Route: 048
  10. SORAFENIB [Concomitant]
     Indication: HEPATIC NEOPLASM MALIGNANT
     Dosage: 4 DF, DAILY

REACTIONS (3)
  - HEPATIC CIRRHOSIS [None]
  - SPLENOMEGALY [None]
  - HEPATIC NEOPLASM MALIGNANT [None]
